FAERS Safety Report 8972438 (Version 7)
Quarter: 2013Q2

REPORT INFORMATION
  Report Type: Spontaneous
  Country: AU (occurrence: AU)
  Receive Date: 20121218
  Receipt Date: 20130528
  Transmission Date: 20140414
  Serious: Yes (Hospitalization)
  Sender: FDA-Public Use
  Company Number: AU-VERTEX PHARMACEUTICALS INC.-2012-026403

PATIENT
  Age: 64 Year
  Sex: Female

DRUGS (18)
  1. INCIVO [Suspect]
     Indication: CHRONIC HEPATITIS C
     Dosage: 2250 MG, QD
     Route: 048
     Dates: start: 20121022, end: 20121113
  2. RIBAVIRIN [Suspect]
     Indication: CHRONIC HEPATITIS C
     Dosage: 1000 MG, QD
     Route: 048
     Dates: start: 20121022, end: 20121106
  3. RIBAVIRIN [Suspect]
     Dosage: 400 MG, UNK
     Route: 048
     Dates: start: 20121113
  4. RIBAVIRIN [Suspect]
     Dosage: 600 MG, UNK
     Route: 048
     Dates: start: 20121107, end: 20121112
  5. PEGASYS [Suspect]
     Indication: CHRONIC HEPATITIS C
     Dosage: 180 ?G, QW
     Route: 058
     Dates: start: 20121022, end: 20121112
  6. AVAPRO [Concomitant]
  7. NEXIUM [Concomitant]
  8. ZANIDIP [Concomitant]
  9. NOTEN [Concomitant]
  10. LIPITOR [Concomitant]
  11. PANADOL [Concomitant]
     Dates: start: 20121022
  12. ZOFRAN [Concomitant]
     Dates: start: 20121023
  13. ATENOLOL [Concomitant]
  14. ESOMEPRAZOLE [Concomitant]
  15. FENOFIBRATE [Concomitant]
     Dates: start: 201205
  16. IRBESARTAN [Concomitant]
  17. LERCANIDIPINE [Concomitant]
  18. NORMAL SALINE [Concomitant]
     Indication: PRODUCT USED FOR UNKNOWN INDICATION
     Dosage: DOSAGE FORM: UNSPECIFIED
     Route: 065

REACTIONS (2)
  - Renal failure acute [Recovered/Resolved]
  - Anaemia [Recovered/Resolved]
